FAERS Safety Report 9602192 (Version 1)
Quarter: 2013Q4

REPORT INFORMATION
  Report Type: Spontaneous
  Country: JP (occurrence: None)
  Receive Date: 20131003
  Receipt Date: 20131003
  Transmission Date: 20140711
  Serious: Yes (Hospitalization)
  Sender: FDA-Public Use
  Company Number: VAL_02745_2013

PATIENT
  Age: 22 Year
  Sex: Female

DRUGS (1)
  1. CARBAMAZEPINE [Suspect]
     Indication: BORDERLINE PERSONALITY DISORDER
     Dosage: DF (INGESTED AN UNKNOWN AMOUNT)

REACTIONS (3)
  - Disturbance in attention [None]
  - Cardiac arrest [None]
  - Drug level increased [None]
